FAERS Safety Report 22066805 (Version 1)
Quarter: 2023Q1

REPORT INFORMATION
  Report Type: Spontaneous
  Country: GB (occurrence: GB)
  Receive Date: 20230306
  Receipt Date: 20230306
  Transmission Date: 20230418
  Serious: Yes (Disabling, Other)
  Sender: FDA-Public Use
  Company Number: None

PATIENT
  Age: 43 Year
  Sex: Male

DRUGS (3)
  1. EMTRIVA [Suspect]
     Active Substance: EMTRICITABINE
     Indication: Product used for unknown indication
     Route: 048
  2. TENOFOVIR [Suspect]
     Active Substance: TENOFOVIR
     Indication: Product used for unknown indication
     Route: 048
  3. RALTEGRAVIR [Suspect]
     Active Substance: RALTEGRAVIR
     Indication: Product used for unknown indication
     Route: 048

REACTIONS (1)
  - Retinal detachment [Unknown]
